FAERS Safety Report 21774606 (Version 1)
Quarter: 2022Q4

REPORT INFORMATION
  Report Type: Other
  Country: US (occurrence: US)
  Receive Date: 20221224
  Receipt Date: 20221224
  Transmission Date: 20230112
  Serious: Yes (Hospitalization, Other)
  Sender: FDA-Public Use
  Company Number: US-HLS-202202274

PATIENT
  Age: 16 Year
  Sex: Female

DRUGS (2)
  1. CLOZAPINE [Suspect]
     Active Substance: CLOZAPINE
     Indication: Schizophrenia
     Dosage: AT BEDTIME , CLOZAPINE WAS INCREASED GRADUALLY TO 50 MG IN THE MORNING AND 100 MG AT BEDTIME, DOSE W
     Route: 065
  2. LITHIUM [Suspect]
     Active Substance: LITHIUM
     Indication: Manic symptom
     Dosage: 300MG TWICE A DAY, DOSE INCREASED TO 300 MG IN THE MORNING AND 600 MG AT BEDTIME, THE DOSE WAS INCRE
     Route: 065

REACTIONS (11)
  - Ataxia [Recovered/Resolved]
  - Tremor [Recovered/Resolved]
  - Diarrhoea [Recovered/Resolved]
  - Hyperhidrosis [Recovered/Resolved]
  - Lethargy [Recovered/Resolved]
  - Disorientation [Recovered/Resolved]
  - Nausea [Recovered/Resolved]
  - Neurotoxicity [Recovered/Resolved]
  - Off label use [Not Recovered/Not Resolved]
  - Sedation complication [Recovered/Resolved]
  - Social avoidant behaviour [Recovered/Resolved]
